FAERS Safety Report 9436079 (Version 1)
Quarter: 2013Q3

REPORT INFORMATION
  Report Type: Spontaneous
  Country: PL (occurrence: PL)
  Receive Date: 20130801
  Receipt Date: 20130801
  Transmission Date: 20140515
  Serious: Yes (Death, Life-Threatening)
  Sender: FDA-Public Use
  Company Number: PHHY2013PL080815

PATIENT
  Age: 13 Year
  Sex: Male
  Weight: 67 kg

DRUGS (1)
  1. METHOTREXATE [Suspect]
     Indication: ACUTE LYMPHOCYTIC LEUKAEMIA
     Dosage: 8950 MG, UNK
     Route: 042
     Dates: start: 20130409, end: 20130410

REACTIONS (3)
  - Dermatitis [Fatal]
  - Stomatitis [Fatal]
  - Gastrointestinal inflammation [Fatal]
